FAERS Safety Report 4417878-8 (Version None)
Quarter: 2004Q2

REPORT INFORMATION
  Report Type: 
  Country: None (occurrence: None)
  Receive Date: 20040621
  Receipt Date: 20040504
  Transmission Date: 20050107
  Serious: Yes (Other)
  Sender: FDA-Public Use
  Company Number: PHEH2004US04929

PATIENT
  Age: 52 Year
  Sex: Female

DRUGS (6)
  1. ZOMETA [Suspect]
     Dosage: QMO, INTRAVENOUS
     Route: 042
  2. WARFARIN SODIUM [Concomitant]
  3. PREDNISONE [Concomitant]
  4. IBUPROFEN [Concomitant]
  5. ACCUPRIL [Concomitant]
  6. FEMARA [Concomitant]

REACTIONS (3)
  - ASEPTIC NECROSIS BONE [None]
  - BONE DISORDER [None]
  - TOOTH EXTRACTION [None]
